FAERS Safety Report 9891516 (Version 3)
Quarter: 2014Q2

REPORT INFORMATION
  Report Type: Spontaneous
  Country: US (occurrence: US)
  Receive Date: 20140212
  Receipt Date: 20140619
  Transmission Date: 20141212
  Serious: Yes (Other)
  Sender: FDA-Public Use
  Company Number: US-THROMBOGENICS NV-JET-2013-331

PATIENT
  Age: 67 Year
  Sex: Female

DRUGS (1)
  1. JETREA [Suspect]
     Indication: VITREOUS ADHESIONS
     Dosage: 0.125 MG, ONE TIME DOSE
     Route: 031
     Dates: start: 20131114, end: 20131114

REACTIONS (4)
  - Macular hole [Recovered/Resolved]
  - Visual acuity reduced [Not Recovered/Not Resolved]
  - Chromatopsia [Not Recovered/Not Resolved]
  - Visual field defect [Unknown]
